FAERS Safety Report 5403778-3 (Version None)
Quarter: 2007Q3

REPORT INFORMATION
  Report Type: 
  Country: None (occurrence: None)
  Receive Date: 20070802
  Receipt Date: 20070613
  Transmission Date: 20080115
  Serious: Yes (Death, Other)
  Sender: FDA-Public Use
  Company Number: US-PURDUE-USA_2007_0028031

PATIENT

DRUGS (1)
  1. OXYCONTIN [Suspect]
     Indication: PAIN
     Dates: start: 19991201

REACTIONS (10)
  - ANXIETY [None]
  - DEATH [None]
  - DEHYDRATION [None]
  - DRUG DEPENDENCE [None]
  - EUPHORIC MOOD [None]
  - FRACTURE [None]
  - GASTROINTESTINAL DISORDER [None]
  - MALNUTRITION [None]
  - MULTIPLE INJURIES [None]
  - PNEUMONIA [None]
